FAERS Safety Report 15807320 (Version 1)
Quarter: 2019Q1

REPORT INFORMATION
  Report Type: Spontaneous
  Country: US (occurrence: US)
  Receive Date: 20190110
  Receipt Date: 20190110
  Transmission Date: 20190417
  Serious: No
  Sender: FDA-Public Use
  Company Number: None

PATIENT

DRUGS (1)
  1. REPATHA [Suspect]
     Active Substance: EVOLOCUMAB
     Indication: CARDIOVASCULAR DISORDER
     Dosage: ?          OTHER FREQUENCY:EVERY 2 WEEKS;?
     Route: 058

REACTIONS (6)
  - Myalgia [None]
  - Oropharyngeal pain [None]
  - Nasal congestion [None]
  - Injection related reaction [None]
  - Nasal discomfort [None]
  - Rhinalgia [None]

NARRATIVE: CASE EVENT DATE: 20181219
